FAERS Safety Report 4808183-6 (Version None)
Quarter: 2005Q4

REPORT INFORMATION
  Report Type: 
  Country: None (occurrence: None)
  Receive Date: 20051020
  Receipt Date: 20051011
  Transmission Date: 20060501
  Serious: Yes (Hospitalization)
  Sender: FDA-Public Use
  Company Number: TCI2003A04536

PATIENT
  Age: 59 Year
  Sex: Male

DRUGS (11)
  1. PIOGLITAZONE HCL [Suspect]
     Indication: DIABETES MELLITUS NON-INSULIN-DEPENDENT
     Dosage: 15 MG (15 MG, 1 D) PER ORAL
     Route: 048
     Dates: start: 20030303
  2. TICLOPIDINE HCL [Suspect]
     Indication: CEREBRAL INFARCTION
     Dosage: 200 MG (200 MG, 1 D) PER ORAL
     Route: 048
     Dates: start: 20020610
  3. BLOPRESS (CANDESARTAN CILEXETIL) [Concomitant]
  4. EUGLUCON (GLIBENCLAMIDE) [Concomitant]
  5. DIBETOS B (BUFORMIN HYDROCHLORIDE) [Concomitant]
  6. AMLODIPINE BESYLATE [Concomitant]
  7. LIPITOR [Concomitant]
  8. NIFLAN (PRANOPROFEN) [Concomitant]
  9. ADONA{AC-17} (CARBAZOCHROME SODIUM SULFONATE) [Concomitant]
  10. CINAL (CINAL) [Concomitant]
  11. KALIKREIN (KALLIDINOGENASE) [Concomitant]

REACTIONS (4)
  - DIABETIC RETINOPATHY [None]
  - OEDEMA PERIPHERAL [None]
  - RETINOPATHY PROLIFERATIVE [None]
  - VITREOUS HAEMORRHAGE [None]
